FAERS Safety Report 24265819 (Version 1)
Quarter: 2024Q3

REPORT INFORMATION
  Report Type: Spontaneous
  Country: FR (occurrence: FR)
  Receive Date: 20240830
  Receipt Date: 20240830
  Transmission Date: 20241016
  Serious: Yes (Hospitalization)
  Sender: BIOGEN
  Company Number: None

PATIENT
  Age: 30 Year
  Sex: Male
  Weight: 54 kg

DRUGS (1)
  1. SPINRAZA [Suspect]
     Active Substance: NUSINERSEN
     Indication: Spinal muscular atrophy
     Dosage: 1 DOSAGE FORM
     Route: 050
     Dates: start: 20211210

REACTIONS (2)
  - Pyelonephritis acute [Recovered/Resolved]
  - Renal colic [Recovered/Resolved]

NARRATIVE: CASE EVENT DATE: 20231001
